FAERS Safety Report 12379455 (Version 1)
Quarter: 2016Q2

REPORT INFORMATION
  Report Type: Spontaneous
  Country: US (occurrence: US)
  Receive Date: 20160517
  Receipt Date: 20160517
  Transmission Date: 20160815
  Serious: Yes (Other)
  Sender: FDA-Public Use
  Company Number: US-APOTEX-2013AP004121

PATIENT

DRUGS (5)
  1. CIPROFLOXACIN. [Concomitant]
     Active Substance: CIPROFLOXACIN
     Route: 065
  2. OFLOXACIN. [Concomitant]
     Active Substance: OFLOXACIN
     Route: 042
  3. OFLOXACIN. [Concomitant]
     Active Substance: OFLOXACIN
  4. OFLOXACIN. [Suspect]
     Active Substance: OFLOXACIN
     Indication: FACIAL NERVE DECOMPRESSION
     Route: 061
     Dates: start: 20130307, end: 20130307
  5. PREDNISONE. [Suspect]
     Active Substance: PREDNISONE
     Indication: PRODUCT USED FOR UNKNOWN INDICATION
     Route: 065

REACTIONS (19)
  - Bone disorder [Not Recovered/Not Resolved]
  - Speech disorder [Not Recovered/Not Resolved]
  - Tachycardia [Not Recovered/Not Resolved]
  - Memory impairment [Not Recovered/Not Resolved]
  - Optic neuropathy [Unknown]
  - Tendon disorder [Not Recovered/Not Resolved]
  - Vision blurred [Not Recovered/Not Resolved]
  - Muscle disorder [Not Recovered/Not Resolved]
  - Abdominal discomfort [Not Recovered/Not Resolved]
  - Surgery [Unknown]
  - Pain [Unknown]
  - Panic attack [Unknown]
  - Drug hypersensitivity [Not Recovered/Not Resolved]
  - Neuropathy peripheral [Not Recovered/Not Resolved]
  - Malaise [Not Recovered/Not Resolved]
  - Condition aggravated [Not Recovered/Not Resolved]
  - Cataract operation [Unknown]
  - Feeling abnormal [Not Recovered/Not Resolved]
  - Tendon rupture [Unknown]

NARRATIVE: CASE EVENT DATE: 201303
